FAERS Safety Report 19390604 (Version 1)
Quarter: 2021Q2

REPORT INFORMATION
  Report Type: Spontaneous
  Country: US (occurrence: US)
  Receive Date: 20210608
  Receipt Date: 20210608
  Transmission Date: 20210717
  Serious: No
  Sender: FDA-Public Use
  Company Number: US-IGSA-BIG0011445

PATIENT
  Age: 36 Year
  Sex: Male
  Weight: 80.27 kg

DRUGS (2)
  1. HYPERRAB [Suspect]
     Active Substance: HUMAN RABIES VIRUS IMMUNE GLOBULIN
     Indication: PROPHYLAXIS
     Dosage: UNK, UNKNOWN
     Route: 030
     Dates: start: 20200916
  2. RABAVERT [Suspect]
     Active Substance: RABIES VIRUS STRAIN FLURY LEP ANTIGEN (PROPIOLACTONE INACTIVATED)
     Indication: PROPHYLAXIS
     Dosage: UNK UNK, UNKNOWN
     Route: 030
     Dates: start: 20200919

REACTIONS (1)
  - Anxiety [Unknown]

NARRATIVE: CASE EVENT DATE: 20200917
